FAERS Safety Report 9761103 (Version 1)
Quarter: 2013Q4

REPORT INFORMATION
  Report Type: Spontaneous
  Country: US (occurrence: US)
  Receive Date: 20131216
  Receipt Date: 20131216
  Transmission Date: 20140711
  Serious: No
  Sender: FDA-Public Use
  Company Number: US-BIOGENIDEC-2013BI104915

PATIENT
  Sex: Female

DRUGS (12)
  1. TECFIDERA [Suspect]
     Indication: PRODUCT USED FOR UNKNOWN INDICATION
     Route: 048
     Dates: start: 20130822, end: 20130829
  2. TECFIDERA [Suspect]
     Indication: PRODUCT USED FOR UNKNOWN INDICATION
     Route: 048
     Dates: start: 20130830
  3. CLEOCIN T [Concomitant]
  4. RETIN-A [Concomitant]
  5. POTASSIUM CHLORIDE [Concomitant]
  6. CLONAZEPAM [Concomitant]
  7. BENADRYL [Concomitant]
  8. GABAPENTIN [Concomitant]
  9. FOLIC ACID [Concomitant]
  10. BIOTIN [Concomitant]
  11. VITAMIN D [Concomitant]
  12. CALCIUM [Concomitant]

REACTIONS (1)
  - Pruritus [Unknown]
